FAERS Safety Report 8767935 (Version 2)
Quarter: 2012Q4

REPORT INFORMATION
  Report Type: 
  Country: US (occurrence: US)
  Receive Date: 20120904
  Receipt Date: 20121204
  Transmission Date: 20130627
  Serious: No
  Sender: FDA-Public Use
  Company Number: US-AMGEN-USASP2012053084

PATIENT
  Age: 48 Year
  Sex: Female
  Weight: 84.81 kg

DRUGS (7)
  1. ENBREL [Suspect]
     Indication: PSORIATIC ARTHROPATHY
     Dosage: 50 mg, qwk
     Route: 058
     Dates: start: 20100212
  2. ENBREL [Suspect]
     Indication: RHEUMATOID ARTHRITIS
  3. ALAVERT [Concomitant]
     Indication: RHINITIS
     Dosage: 10 mg, prn
     Route: 048
     Dates: start: 2000
  4. CELEBREX [Concomitant]
     Indication: RHEUMATOID ARTHRITIS
     Dosage: 200 mg, qd
     Route: 048
     Dates: start: 2003
  5. POTASSIUM [Concomitant]
     Dosage: UNK UNK, prn
     Route: 048
  6. LASIX                              /00032601/ [Concomitant]
     Dosage: UNK UNK, prn
     Route: 048
  7. SYNTHROID [Concomitant]
     Indication: HYPERTHYROIDISM
     Dosage: 25 mg, qd
     Route: 048
     Dates: start: 1993

REACTIONS (2)
  - Hypersensitivity [Not Recovered/Not Resolved]
  - Sinusitis [Recovered/Resolved]
